FAERS Safety Report 9440573 (Version 1)
Quarter: 2013Q3

REPORT INFORMATION
  Report Type: Spontaneous
  Country: None (occurrence: US)
  Receive Date: 20130805
  Receipt Date: 20130805
  Transmission Date: 20140515
  Serious: Yes (Other)
  Sender: FDA-Public Use
  Company Number: US-TARO-2013P1013776

PATIENT
  Sex: Male

DRUGS (2)
  1. CLOMIPRAMINE HCL [Suspect]
     Dates: start: 1989
  2. CLOMIPRAMINE HCL [Suspect]

REACTIONS (1)
  - Atrial fibrillation [Unknown]
